FAERS Safety Report 13070622 (Version 2)
Quarter: 2018Q2

REPORT INFORMATION
  Report Type: Spontaneous
  Country: JP (occurrence: JP)
  Receive Date: 20161229
  Receipt Date: 20180529
  Transmission Date: 20180711
  Serious: Yes (Other)
  Sender: FDA-Public Use
  Company Number: JP-ROCHE-1872800

PATIENT
  Age: 64 Year
  Sex: Female

DRUGS (3)
  1. AVASTIN [Suspect]
     Active Substance: BEVACIZUMAB
     Indication: LUNG ADENOCARCINOMA STAGE IV
     Dosage: DOSAGE IS UNCERTAIN. ?ADMINISTRATION PERIOD: FOUR CYCLES
     Route: 041
  2. PEMETREXED. [Suspect]
     Active Substance: PEMETREXED
     Indication: LUNG ADENOCARCINOMA STAGE IV
     Dosage: DOSAGE IS UNCERTAIN. ?ADMINISTRATION PERIOD: FOUR CYCLES
     Route: 041
  3. CARBOPLATIN. [Suspect]
     Active Substance: CARBOPLATIN
     Indication: LUNG ADENOCARCINOMA STAGE IV
     Dosage: DOSAGE IS UNCERTAIN. ?ADMINISTRATION PERIOD: FOUR CYCLES
     Route: 041

REACTIONS (1)
  - Interstitial lung disease [Unknown]
